FAERS Safety Report 6600621-1 (Version None)
Quarter: 2010Q1

REPORT INFORMATION
  Report Type: 
  Country: None (occurrence: None)
  Receive Date: 20100223
  Receipt Date: 20100223
  Transmission Date: 20100710
  Serious: Yes (Death, Hospitalization)
  Sender: FDA-Public Use
  Company Number: None

PATIENT
  Sex: Female
  Weight: 54.4 kg

DRUGS (16)
  1. ZOCOR [Suspect]
     Indication: ACUTE MYOCARDIAL INFARCTION
     Dosage: 80MG DAILY PO. APPROXIMATELY ONE MONTH
     Route: 048
  2. ZOCOR [Suspect]
     Indication: DYSLIPIDAEMIA
     Dosage: 80MG DAILY PO. APPROXIMATELY ONE MONTH
     Route: 048
  3. ZOFRAN [Concomitant]
  4. VITAMIN E [Concomitant]
  5. TRUSOPT [Concomitant]
  6. SOLU-CORTEF [Concomitant]
  7. RENAGEL [Concomitant]
  8. NORVASC [Concomitant]
  9. MORPHINE SULFATE [Concomitant]
  10. K-DUR [Concomitant]
  11. COREG [Concomitant]
  12. COENZYME Q10 [Concomitant]
  13. ALPHAGAN [Concomitant]
  14. LASIX [Concomitant]
  15. XALATAN [Concomitant]
  16. ASPIRIN [Concomitant]

REACTIONS (1)
  - RHABDOMYOLYSIS [None]
